FAERS Safety Report 18386066 (Version 1)
Quarter: 2020Q4

REPORT INFORMATION
  Report Type: Spontaneous
  Country: US (occurrence: US)
  Receive Date: 20201014
  Receipt Date: 20201014
  Transmission Date: 20210114
  Serious: Yes (Death)
  Sender: FDA-Public Use
  Company Number: None

PATIENT
  Age: 36 Year
  Sex: Male
  Weight: 76.5 kg

DRUGS (2)
  1. KRATOM [Suspect]
     Active Substance: HERBALS\MITRAGYNINE
     Dates: start: 20200309, end: 20200803
  2. ANTIHISTAMINE [Concomitant]
     Active Substance: ANTIHISTAMINES NOS

REACTIONS (4)
  - Completed suicide [None]
  - Withdrawal syndrome [None]
  - Paranoia [None]
  - Depression [None]

NARRATIVE: CASE EVENT DATE: 20200905
